FAERS Safety Report 6746969-1 (Version None)
Quarter: 2010Q2

REPORT INFORMATION
  Report Type: 
  Country: None (occurrence: None)
  Receive Date: 20100528
  Receipt Date: 20100309
  Transmission Date: 20101027
  Serious: No
  Sender: FDA-Public Use
  Company Number: US-ASTRAZENECA-2010SE03867

PATIENT
  Sex: Female

DRUGS (6)
  1. PRILOSEC OTC [Suspect]
     Dosage: 1 TABLET, 2 /DAY
     Route: 048
  2. SPIRIVA [Concomitant]
     Dosage: UNKNOWN
  3. ZYRTEC [Concomitant]
     Dosage: UNKNOWN
  4. NEBULIZER MEDICATIONS [Concomitant]
     Dosage: UNKNOWN
  5. CROMOLYN /00082101/ [Concomitant]
     Dosage: UNKNOWN
  6. ALBUTEROL [Concomitant]
     Dosage: UNKNOWN

REACTIONS (6)
  - DYSGEUSIA [None]
  - GASTRIC DISORDER [None]
  - HEADACHE [None]
  - INAPPROPRIATE SCHEDULE OF DRUG ADMINISTRATION [None]
  - PRODUCT TASTE ABNORMAL [None]
  - RHINORRHOEA [None]
